FAERS Safety Report 8490548-5 (Version None)
Quarter: 2012Q3

REPORT INFORMATION
  Report Type: 
  Country: None (occurrence: None)
  Receive Date: 20120705
  Receipt Date: 20120625
  Transmission Date: 20120928
  Serious: Yes (Hospitalization)
  Sender: FDA-Public Use
  Company Number: JP-ABBOTT-12P-087-0937724-00

PATIENT
  Sex: Female
  Weight: 55 kg

DRUGS (18)
  1. MEROPENEM [Concomitant]
     Indication: PRODUCT USED FOR UNKNOWN INDICATION
     Dates: start: 20100831
  2. RIFAMPICIN [Concomitant]
     Indication: LATENT TUBERCULOSIS
  3. PREDNISOLONE [Concomitant]
     Indication: RHEUMATOID ARTHRITIS
     Route: 048
  4. ISONIAZID [Concomitant]
     Indication: PRODUCT USED FOR UNKNOWN INDICATION
     Route: 048
     Dates: start: 20091104
  5. CELECOXIB [Concomitant]
     Indication: RHEUMATOID ARTHRITIS
  6. TRIAZOLAM [Concomitant]
     Indication: INSOMNIA
  7. PREDNISOLONE [Concomitant]
     Route: 048
  8. BUCILLAMINE [Concomitant]
     Indication: RHEUMATOID ARTHRITIS
     Route: 048
  9. SIMVASTATIN [Concomitant]
     Indication: DYSLIPIDAEMIA
  10. METHOTREXATE [Concomitant]
     Indication: RHEUMATOID ARTHRITIS
     Route: 048
     Dates: start: 20101009
  11. SODIUM RISEDRONATE HYDRATE [Concomitant]
     Indication: OSTEOPOROSIS
     Route: 048
  12. OMEPRAZOLE [Concomitant]
     Indication: GASTRIC ULCER
  13. TOCOPHEROL CONCENTRATE CAP [Concomitant]
     Indication: PRODUCT USED FOR UNKNOWN INDICATION
     Route: 048
  14. TACROLIMUS [Concomitant]
     Indication: RHEUMATOID ARTHRITIS
  15. CLINDAMYCIN [Concomitant]
     Indication: PRODUCT USED FOR UNKNOWN INDICATION
     Dates: start: 20100909, end: 20100920
  16. ECABET SODIUM HYDRATE [Concomitant]
     Indication: GASTRIC ULCER
  17. HUMIRA [Suspect]
     Indication: RHEUMATOID ARTHRITIS
     Route: 058
     Dates: start: 20091211, end: 20100925
  18. MECOBALAMIN [Concomitant]
     Indication: PRODUCT USED FOR UNKNOWN INDICATION

REACTIONS (3)
  - CELLULITIS [None]
  - PANNICULITIS [None]
  - LUPUS-LIKE SYNDROME [None]
